FAERS Safety Report 20886660 (Version 3)
Quarter: 2022Q3

REPORT INFORMATION
  Report Type: Spontaneous
  Country: CA (occurrence: None)
  Receive Date: 20220527
  Receipt Date: 20220919
  Transmission Date: 20221027
  Serious: Yes (Other)
  Sender: FDA-Public Use
  Company Number: CA-ROCHE-3098414

PATIENT
  Sex: Male

DRUGS (2)
  1. OCREVUS [Suspect]
     Active Substance: OCRELIZUMAB
     Indication: Relapsing-remitting multiple sclerosis
     Dosage: REPORTER SOLELY KNOWS THE PATIENT RECEIVES OCREVUS EVERY 6 MONTHS
     Route: 042
     Dates: start: 20191204
  2. OCREVUS [Suspect]
     Active Substance: OCRELIZUMAB
     Route: 042
     Dates: start: 20191204

REACTIONS (4)
  - Oesophageal carcinoma [Unknown]
  - Hepatic cancer stage IV [Not Recovered/Not Resolved]
  - Oesophageal carcinoma [Not Recovered/Not Resolved]
  - Blood test abnormal [Recovered/Resolved]
